FAERS Safety Report 7449442-0 (Version None)
Quarter: 2011Q2

REPORT INFORMATION
  Report Type: 
  Country: None (occurrence: None)
  Receive Date: 20110502
  Receipt Date: 20110425
  Transmission Date: 20111010
  Serious: No
  Sender: FDA-Public Use
  Company Number: US-BIOGENIDEC-2011BI015356

PATIENT
  Age: 12 Year
  Sex: Male

DRUGS (3)
  1. COPAXONE [Concomitant]
     Indication: MULTIPLE SCLEROSIS
  2. BETASERON [Concomitant]
     Indication: MULTIPLE SCLEROSIS
  3. AVONEX [Suspect]
     Indication: MULTIPLE SCLEROSIS
     Route: 030
     Dates: start: 20100508

REACTIONS (2)
  - DRUG INEFFECTIVE [None]
  - CENTRAL NERVOUS SYSTEM LESION [None]
